FAERS Safety Report 12881476 (Version 1)
Quarter: 2016Q4

REPORT INFORMATION
  Report Type: Report from Study
  Country: BR (occurrence: BR)
  Receive Date: 20161025
  Receipt Date: 20161025
  Transmission Date: 20170207
  Serious: Yes (Other)
  Sender: FDA-Public Use
  Company Number: PHHY2016BR094968

PATIENT
  Sex: Male
  Weight: 23 kg

DRUGS (2)
  1. EXJADE [Suspect]
     Active Substance: DEFERASIROX
     Indication: MYELODYSPLASTIC SYNDROME
     Dosage: 25 MG/KG (625 MG; 2 DF OF 250 MG AND 1 DF OF 125 MG OR SPLIT DF OF 250 MG), QD
     Route: 048
  2. CICLOSPORINA [Concomitant]
     Active Substance: CYCLOSPORINE
     Indication: PRODUCT USED FOR UNKNOWN INDICATION
     Route: 065

REACTIONS (8)
  - Device related infection [Unknown]
  - Wrong technique in product usage process [Unknown]
  - Abdominal pain [Unknown]
  - Inappropriate schedule of drug administration [Unknown]
  - Vomiting [Unknown]
  - Decreased immune responsiveness [Unknown]
  - Weight decreased [Unknown]
  - Bacterial infection [Unknown]
